FAERS Safety Report 13560158 (Version 3)
Quarter: 2017Q3

REPORT INFORMATION
  Report Type: Report from Study
  Country: None (occurrence: US)
  Receive Date: 20170518
  Receipt Date: 20170818
  Transmission Date: 20171127
  Serious: Yes (Hospitalization, Other)
  Sender: FDA-Public Use
  Company Number: US-ABBVIE-17K-163-1975916-00

PATIENT
  Age: 55 Year
  Sex: Female

DRUGS (8)
  1. PULMICORT TURBUHALER [Concomitant]
     Active Substance: BUDESONIDE
     Indication: ASTHMA
  2. FLUTICASONE NASAL SPRAY [Concomitant]
     Active Substance: FLUTICASONE
     Indication: PRODUCT USED FOR UNKNOWN INDICATION
  3. HUMIRA [Suspect]
     Active Substance: ADALIMUMAB
     Indication: CROHN^S DISEASE
     Route: 058
     Dates: start: 2015
  4. LISINOPRIL. [Concomitant]
     Active Substance: LISINOPRIL
     Indication: HYPERTENSION
  5. PAXIL [Concomitant]
     Active Substance: PAROXETINE HYDROCHLORIDE
     Indication: DEPRESSION
  6. HUMIRA [Suspect]
     Active Substance: ADALIMUMAB
     Route: 058
  7. FENOFIBRATE. [Concomitant]
     Active Substance: FENOFIBRATE
     Indication: BLOOD CHOLESTEROL INCREASED
  8. LOMOTIL [Concomitant]
     Active Substance: ATROPINE SULFATE\DIPHENOXYLATE HYDROCHLORIDE
     Indication: DIARRHOEA

REACTIONS (4)
  - Intestinal obstruction [Recovered/Resolved]
  - Nephropathy [Not Recovered/Not Resolved]
  - Dehydration [Recovered/Resolved]
  - Nasopharyngitis [Unknown]

NARRATIVE: CASE EVENT DATE: 201704
